FAERS Safety Report 10152353 (Version 3)
Quarter: 2015Q2

REPORT INFORMATION
  Report Type: Spontaneous
  Country: CA (occurrence: CA)
  Receive Date: 20140505
  Receipt Date: 20150522
  Transmission Date: 20150821
  Serious: Yes (Other)
  Sender: FDA-Public Use
  Company Number: CA-SANOFI-AVENTIS-2013SA091487

PATIENT
  Age: 54 Year
  Sex: Female
  Weight: 78 kg

DRUGS (10)
  1. COVERSYL [Concomitant]
     Active Substance: PERINDOPRIL
     Dates: start: 2011
  2. PAMIDRONATE DISODIUM. [Concomitant]
     Active Substance: PAMIDRONATE DISODIUM
     Route: 042
     Dates: start: 2006
  3. PERJETA [Suspect]
     Active Substance: PERTUZUMAB
     Indication: BREAST CANCER METASTATIC
     Route: 042
     Dates: end: 20140108
  4. TYLENOL [Concomitant]
     Active Substance: ACETAMINOPHEN
  5. LOSEC [Concomitant]
     Active Substance: OMEPRAZOLE
     Dates: start: 2007
  6. HERCEPTIN [Suspect]
     Active Substance: TRASTUZUMAB
     Indication: BREAST CANCER METASTATIC
     Route: 042
     Dates: end: 201401
  7. PERJETA [Suspect]
     Active Substance: PERTUZUMAB
     Indication: BREAST CANCER METASTATIC
     Route: 042
  8. TAXOTERE [Suspect]
     Active Substance: DOCETAXEL
     Indication: BREAST CANCER METASTATIC
     Dosage: FORM: SOLUTION INTRAVENOUS
     Route: 065
     Dates: start: 20130904, end: 201401
  9. PERJETA [Suspect]
     Active Substance: PERTUZUMAB
     Indication: BREAST CANCER METASTATIC
     Route: 042
     Dates: start: 20130904
  10. OXYCODONE [Concomitant]
     Active Substance: OXYCODONE

REACTIONS (5)
  - Fall [Unknown]
  - Hip fracture [Unknown]
  - Rash macular [Unknown]
  - Burning sensation [Unknown]
  - Pruritus [Unknown]

NARRATIVE: CASE EVENT DATE: 20130907
